FAERS Safety Report 10312765 (Version 1)
Quarter: 2014Q3

REPORT INFORMATION
  Report Type: Spontaneous
  Country: FR (occurrence: None)
  Receive Date: 20140716
  Receipt Date: 20140716
  Transmission Date: 20150326
  Serious: Yes (Life-Threatening)
  Sender: FDA-Public Use
  Company Number: FK201402659

PATIENT
  Age: 60 Year
  Sex: Female

DRUGS (8)
  1. SUFENTA [Suspect]
     Active Substance: SUFENTANIL CITRATE
     Indication: PRODUCT USED FOR UNKNOWN INDICATION
     Route: 042
     Dates: start: 20140107, end: 20140107
  2. CLINDAMYCIN [Suspect]
     Active Substance: CLINDAMYCIN\CLINDAMYCIN PHOSPHATE
     Indication: PRODUCT USED FOR UNKNOWN INDICATION
     Route: 042
     Dates: start: 20140107, end: 20140107
  3. LAROXYL (AMITRIPTYLINE HYDROCHLORIDE) [Concomitant]
  4. MIDAZOLAM [Suspect]
     Active Substance: MIDAZOLAM\MIDAZOLAM HYDROCHLORIDE
     Indication: PRODUCT USED FOR UNKNOWN INDICATION
     Route: 042
     Dates: start: 20140107, end: 20140107
  5. PROPOFOL FRESENIUS (NOT SPECIFIED) (PROPOFOL) (PROPOFOL) [Suspect]
     Active Substance: PROPOFOL
     Indication: INDUCTION OF ANAESTHESIA
     Route: 042
     Dates: start: 20140107, end: 20140107
  6. CISATRACURIUM [Suspect]
     Active Substance: CISATRACURIUM
     Indication: VASCULAR GRAFT
     Route: 042
     Dates: start: 20140101, end: 20140107
  7. NUREFLEX (IBUPROFEN) [Concomitant]
  8. NOCTAMIDE (LORMETAZEPAM) (TABLET EXTENDED RELEASE) (LORMETAZEPAM) [Concomitant]
     Active Substance: LORMETAZEPAM

REACTIONS (1)
  - Anaphylactic shock [None]

NARRATIVE: CASE EVENT DATE: 20140107
